FAERS Safety Report 7204828-4 (Version None)
Quarter: 2010Q4

REPORT INFORMATION
  Report Type: 
  Country: None (occurrence: None)
  Receive Date: 20101230
  Receipt Date: 20101221
  Transmission Date: 20110411
  Serious: No
  Sender: FDA-Public Use
  Company Number: US-BAXTER-2010BH029813

PATIENT
  Age: 55 Year
  Sex: Male

DRUGS (4)
  1. DIANEAL [Suspect]
     Indication: PERITONEAL DIALYSIS
     Route: 033
     Dates: start: 20100716
  2. DIANEAL [Suspect]
     Indication: PERITONEAL DIALYSIS
     Route: 033
     Dates: start: 20100716
  3. PROAIR HFA [Concomitant]
     Indication: ASTHMA
     Route: 065
  4. ALBUTEROL SULFATE [Concomitant]
     Indication: ASTHMA
     Route: 065

REACTIONS (3)
  - ASTHMA [None]
  - DYSPNOEA [None]
  - HYPOTENSION [None]
